FAERS Safety Report 20672736 (Version 4)
Quarter: 2024Q2

REPORT INFORMATION
  Report Type: Spontaneous
  Country: DE (occurrence: DE)
  Receive Date: 20220405
  Receipt Date: 20240603
  Transmission Date: 20240716
  Serious: Yes (Hospitalization, Other)
  Sender: FDA-Public Use
  Company Number: DE-MLMSERVICE-20220318-3441196-1

PATIENT
  Age: 30 Year
  Sex: Male
  Weight: 67 kg

DRUGS (15)
  1. DOCETAXEL [Suspect]
     Active Substance: DOCETAXEL\DOCETAXEL ANHYDROUS
     Indication: Adenocarcinoma gastric
     Dosage: 600 MILLIGRAM/SQ. METER, 6 CYCLE (85 MG/M2 BIWEEKLY)
     Route: 065
  2. DOCETAXEL [Suspect]
     Active Substance: DOCETAXEL\DOCETAXEL ANHYDROUS
     Indication: Metastases to liver
     Dosage: UNK, 6 CYCLE (DOSES WERE REDUCED TO 75%)
     Route: 065
  3. DOCETAXEL [Suspect]
     Active Substance: DOCETAXEL\DOCETAXEL ANHYDROUS
     Dosage: 50 MILLIGRAM/SQ. METER, BIWEEKLY
     Route: 065
  4. LEUCOVORIN [Suspect]
     Active Substance: LEUCOVORIN\LEUCOVORIN CALCIUM
     Indication: Adenocarcinoma gastric
     Dosage: 2400 MILLIGRAM/SQ. METER, 6 CYCLE (200 MG/M2 BIWEEKLY)
     Route: 065
  5. LEUCOVORIN [Suspect]
     Active Substance: LEUCOVORIN\LEUCOVORIN CALCIUM
     Indication: Metastases to liver
     Dosage: UNK, 6 CYLE (DOSES WERE REDUCED TO 75%)
     Route: 065
  6. LEUCOVORIN [Suspect]
     Active Substance: LEUCOVORIN\LEUCOVORIN CALCIUM
     Dosage: 200 MG/M2 CYCLIC
     Route: 065
  7. OXALIPLATIN [Suspect]
     Active Substance: OXALIPLATIN
     Indication: Adenocarcinoma gastric
     Dosage: UNK (DOSES WERE REDUCED TO 75%), 6 CYCLE
     Route: 065
  8. OXALIPLATIN [Suspect]
     Active Substance: OXALIPLATIN
     Indication: Metastases to liver
     Dosage: 1020 MILLIGRAM/SQ. METER, 6 CYCLE (85 MG/M2 BIWEEKLY)
     Route: 065
  9. OXALIPLATIN [Suspect]
     Active Substance: OXALIPLATIN
     Dosage: 85 MG/M2 6 CYCLE
     Route: 065
  10. TRASTUZUMAB [Suspect]
     Active Substance: TRASTUZUMAB
     Indication: Metastases to liver
     Dosage: 48 MILLIGRAM/KILOGRAM, 12 CYCLE
     Route: 065
  11. TRASTUZUMAB [Suspect]
     Active Substance: TRASTUZUMAB
     Indication: Adenocarcinoma gastric
     Dosage: 4 MILLIGRAM/KILOGRAM
     Route: 065
  12. FLUOROURACIL [Suspect]
     Active Substance: FLUOROURACIL
     Indication: Adenocarcinoma gastric
     Dosage: UNK, 6 CYCLE (DOSES WERE REDUCED TO 75%)
     Route: 041
  13. FLUOROURACIL [Suspect]
     Active Substance: FLUOROURACIL
     Indication: Metastases to liver
     Dosage: 28800 MILLIGRAM/SQ. METER, 6 CYCLE (2,400 MG/M2 BIWEEKLY)
     Route: 041
  14. FLUOROURACIL [Suspect]
     Active Substance: FLUOROURACIL
     Dosage: 2400 MILLIGRAM/SQ. METER (FOR 24 HR. FOR 6 CYCLES)
     Route: 042
  15. FILGRASTIM [Concomitant]
     Active Substance: FILGRASTIM
     Indication: Product used for unknown indication
     Dosage: UNK ADMINISTERED ON DAYS 4-6
     Route: 058

REACTIONS (14)
  - Tumour lysis syndrome [Recovered/Resolved]
  - Polyneuropathy [Recovered/Resolved]
  - Erythema [Recovered/Resolved]
  - Eczema [Recovered/Resolved]
  - Haematotoxicity [Recovered/Resolved]
  - Skin reaction [Recovered/Resolved]
  - Hepatic function abnormal [Recovered/Resolved]
  - Ascites [Recovered/Resolved]
  - Polyserositis [Recovered/Resolved]
  - Alopecia [Not Recovered/Not Resolved]
  - Onychoclasis [Not Recovered/Not Resolved]
  - Onycholysis [Recovered/Resolved]
  - Paronychia [Recovered/Resolved]
  - Pleural effusion [Recovered/Resolved]
